FAERS Safety Report 9670042 (Version 1)
Quarter: 2013Q4

REPORT INFORMATION
  Report Type: Spontaneous
  Country: FR (occurrence: FR)
  Receive Date: 20131105
  Receipt Date: 20131105
  Transmission Date: 20140711
  Serious: Yes (Other)
  Sender: FDA-Public Use
  Company Number: FR-UCBSA-101954

PATIENT
  Sex: 0

DRUGS (2)
  1. KEPPRA [Suspect]
     Indication: EPILEPSY
     Dosage: DAILY DOSE: 1000 MG
     Route: 064
     Dates: start: 20120616, end: 201302
  2. LAMICTAL [Suspect]
     Indication: EPILEPSY
     Dosage: DAILY DOSE: 200 MG
     Route: 064
     Dates: start: 20120616, end: 201302

REACTIONS (2)
  - Premature baby [Unknown]
  - Foetal exposure during pregnancy [Recovered/Resolved]
